FAERS Safety Report 19189285 (Version 1)
Quarter: 2021Q2

REPORT INFORMATION
  Report Type: Spontaneous
  Country: HR (occurrence: HR)
  Receive Date: 20210428
  Receipt Date: 20210428
  Transmission Date: 20210717
  Serious: Yes (Other)
  Sender: FDA-Public Use
  Company Number: HR-ASTRAZENECA-2021A349172

PATIENT
  Age: 47 Year
  Sex: Male

DRUGS (2)
  1. APAURIN [Suspect]
     Active Substance: DIAZEPAM
     Dosage: EMPTY PACKS OF APAURINE OF 10 MG (DIAZEPAM, 30 TBL IN PACKAGING)
     Route: 048
     Dates: start: 20210305, end: 20210305
  2. SEROQUEL [Suspect]
     Active Substance: QUETIAPINE FUMARATE
     Dosage: PRAZNE KUTIJE SEROQUELA (NO NAME IS IF OBIAN ILI XR) FROM 200 MG (QUETIAPINE)
     Route: 048
     Dates: start: 20210305, end: 20210305

REACTIONS (3)
  - Suicide attempt [Unknown]
  - Intentional overdose [Unknown]
  - Loss of consciousness [Unknown]

NARRATIVE: CASE EVENT DATE: 20210305
